FAERS Safety Report 20721380 (Version 1)
Quarter: 2022Q2

REPORT INFORMATION
  Report Type: Spontaneous
  Country: US (occurrence: US)
  Receive Date: 20220418
  Receipt Date: 20220418
  Transmission Date: 20220720
  Serious: Yes (Death, Hospitalization)
  Sender: FDA-Public Use
  Company Number: US-CMP PHARMA-2022CMP00007

PATIENT
  Age: 57 Year
  Sex: Male

DRUGS (3)
  1. SODIUM POLYSTYRENE SULFONATE [Suspect]
     Active Substance: SODIUM POLYSTYRENE SULFONATE
     Route: 065
  2. SEVELAMER [Suspect]
     Active Substance: SEVELAMER
     Indication: Hyperphosphataemia
     Dosage: 1600 MG, 3X/DAY
     Route: 065
  3. INSULIN NOS [Concomitant]
     Active Substance: INSULIN NOS
     Indication: Diabetes mellitus
     Route: 065

REACTIONS (3)
  - Encephalopathy [Not Recovered/Not Resolved]
  - Gastrointestinal haemorrhage [Fatal]
  - Gastrointestinal ulcer [Not Recovered/Not Resolved]
